FAERS Safety Report 8832630 (Version 1)
Quarter: 2012Q4

REPORT INFORMATION
  Report Type: 
  Country: US (occurrence: US)
  Receive Date: 20121010
  Receipt Date: 20121010
  Transmission Date: 20130627
  Serious: No
  Sender: FDA-Public Use
  Company Number: US-PFIZER INC-2012250117

PATIENT
  Sex: Female

DRUGS (1)
  1. GEODON [Suspect]
     Dosage: 60 mg, UNK

REACTIONS (4)
  - Feeling abnormal [Unknown]
  - Dysarthria [Unknown]
  - Drooling [Unknown]
  - Malaise [Unknown]
